FAERS Safety Report 16037591 (Version 4)
Quarter: 2020Q1

REPORT INFORMATION
  Report Type: Spontaneous
  Country: US (occurrence: US)
  Receive Date: 20190305
  Receipt Date: 20200327
  Transmission Date: 20200409
  Serious: Yes (Other)
  Sender: FDA-Public Use
  Company Number: US-PFIZER INC-2019091951

PATIENT
  Age: 68 Year
  Sex: Female
  Weight: 136.1 kg

DRUGS (1)
  1. XELJANZ [Suspect]
     Active Substance: TOFACITINIB CITRATE
     Indication: RHEUMATOID ARTHRITIS
     Dosage: 5 MG, 2X/DAY (ONE TABLET IN THE MORNING AND ONE TABLET AT NIGHT)
     Route: 048

REACTIONS (9)
  - Cellulitis [Unknown]
  - Eye disorder [Unknown]
  - Fluid retention [Unknown]
  - Pain in extremity [Not Recovered/Not Resolved]
  - Urinary tract infection [Unknown]
  - Skin disorder [Not Recovered/Not Resolved]
  - Weight fluctuation [Unknown]
  - Gait disturbance [Not Recovered/Not Resolved]
  - Erythema [Unknown]
